FAERS Safety Report 4382550-X (Version None)
Quarter: 2004Q2

REPORT INFORMATION
  Report Type: 
  Country: None (occurrence: None)
  Receive Date: 20040617
  Receipt Date: 20040614
  Transmission Date: 20050107
  Serious: Yes (Hospitalization)
  Sender: FDA-Public Use
  Company Number: 2004-116502-NL

PATIENT
  Age: 47 Year
  Sex: Female

DRUGS (4)
  1. MIRTAZAPINE [Suspect]
     Dosage: SEE IMAGE
  2. MIRTAZAPINE [Suspect]
     Dosage: SEE IMAGE
  3. PAROXETINE HYDROCHLORIDE [Suspect]
     Dosage: SEE IMAGE
  4. VENLAFAXINE HCL [Concomitant]

REACTIONS (4)
  - BLOOD PRESSURE INCREASED [None]
  - FLUID RETENTION [None]
  - OEDEMA PERIPHERAL [None]
  - WEIGHT INCREASED [None]
